FAERS Safety Report 7138424-4 (Version None)
Quarter: 2010Q4

REPORT INFORMATION
  Report Type: 
  Country: None (occurrence: None)
  Receive Date: 20101110
  Receipt Date: 20101027
  Transmission Date: 20110411
  Serious: Yes (Hospitalization)
  Sender: FDA-Public Use
  Company Number: 2010PROUSA00085

PATIENT
  Age: 77 Year
  Sex: Male
  Weight: 65.5 kg

DRUGS (14)
  1. PROVENGE [Suspect]
     Indication: PROSTATE CANCER METASTATIC
     Dosage: 250 ML, SINGLE, INTRAVENOUS
     Route: 042
     Dates: start: 20100812, end: 20100812
  2. PROVENGE [Suspect]
     Indication: PROSTATE CANCER METASTATIC
     Dosage: 250 ML, SINGLE, INTRAVENOUS
     Route: 042
     Dates: start: 20100927, end: 20100927
  3. PROVENGE [Suspect]
  4. METOCLOPRAMIDE [Concomitant]
  5. PANTOPRAZOLE [Concomitant]
  6. AMOXICILLIN [Concomitant]
  7. CLARITHROMYCIN [Concomitant]
  8. RELISTOR (METHYLNALTREXONE BROMIDE) [Concomitant]
  9. MIRALAX [Concomitant]
  10. TORADOL [Concomitant]
  11. ZOFRAN /00955301/ (ONDANSETRON) [Concomitant]
  12. OXYCODONE HCL [Concomitant]
  13. DILAUDID [Concomitant]
  14. RESTORIL /00393701/ (TEMAZEPAM) [Concomitant]

REACTIONS (11)
  - ANAEMIA [None]
  - ARTHRALGIA [None]
  - BLOOD ALKALINE PHOSPHATASE INCREASED [None]
  - BLOOD BILIRUBIN INCREASED [None]
  - BLOOD LACTATE DEHYDROGENASE INCREASED [None]
  - CONFUSIONAL STATE [None]
  - FATIGUE [None]
  - HELICOBACTER GASTRITIS [None]
  - MENISCUS LESION [None]
  - MYALGIA [None]
  - PAIN IN EXTREMITY [None]
